FAERS Safety Report 8921464 (Version 2)
Quarter: 2012Q4

REPORT INFORMATION
  Report Type: 
  Country: IL (occurrence: IL)
  Receive Date: 20121121
  Receipt Date: 20121127
  Transmission Date: 20130627
  Serious: Yes (Hospitalization, Disabling, Other)
  Sender: FDA-Public Use
  Company Number: IL-B.I. PHARMACEUTICALS,INC./RIDGEFIELD-2012-AP-01005RI

PATIENT
  Age: 66 Year
  Sex: Female
  Weight: 90 kg

DRUGS (9)
  1. PRADAXA [Suspect]
     Indication: ATRIAL FIBRILLATION
     Dosage: 300 mg
     Route: 048
  2. PRADAXA [Suspect]
     Indication: CEREBROVASCULAR ACCIDENT
  3. ATORVASTIN [Concomitant]
     Dosage: 20 mg
  4. INSULIN [Concomitant]
  5. BISOPROLOL [Concomitant]
  6. ENALAPRIL [Concomitant]
  7. AMLODIPINE [Concomitant]
  8. DIGOXIN [Concomitant]
  9. FUROSEMIDE [Concomitant]

REACTIONS (2)
  - Haemorrhage intracranial [Recovered/Resolved with Sequelae]
  - Monoplegia [Not Recovered/Not Resolved]
